FAERS Safety Report 16572828 (Version 1)
Quarter: 2019Q3

REPORT INFORMATION
  Report Type: Spontaneous
  Country: GB (occurrence: GB)
  Receive Date: 20190715
  Receipt Date: 20190715
  Transmission Date: 20191004
  Serious: Yes (Hospitalization)
  Sender: FDA-Public Use
  Company Number: GB-TEVA-2019-GB-1076946

PATIENT
  Age: 48 Year
  Sex: Female

DRUGS (14)
  1. FLUOXETINE [Concomitant]
     Active Substance: FLUOXETINE HYDROCHLORIDE
  2. SALBUTAMOL [Concomitant]
     Active Substance: ALBUTEROL
  3. CO-AMOXICLAV [Concomitant]
     Active Substance: AMOXICILLIN\CLAVULANATE POTASSIUM
  4. MORPHINE SULFATE. [Concomitant]
     Active Substance: MORPHINE SULFATE
  5. AMLODIPINE [Concomitant]
     Active Substance: AMLODIPINE BESYLATE
  6. CANESTEN HC [Concomitant]
     Active Substance: CLOTRIMAZOLE\HYDROCORTISONE
  7. DOCETAXEL. [Suspect]
     Active Substance: DOCETAXEL
     Indication: BREAST CANCER
     Dosage: UNKNOWN - AWAITING DOCUMENTATION FROM TERTIARY PROVIDER
     Route: 042
     Dates: start: 20190515, end: 20190602
  8. CYCLIZINE [Concomitant]
     Active Substance: CYCLIZINE
  9. ENOXAPARIN [Concomitant]
     Active Substance: ENOXAPARIN
  10. FILGRASTIM [Concomitant]
     Active Substance: FILGRASTIM
  11. PARACETAMOL [Concomitant]
     Active Substance: ACETAMINOPHEN
  12. RAMIPRIL. [Concomitant]
     Active Substance: RAMIPRIL
  13. QVAR [Concomitant]
     Active Substance: BECLOMETHASONE DIPROPIONATE
  14. LEVOTHYROXINE. [Concomitant]
     Active Substance: LEVOTHYROXINE

REACTIONS (4)
  - Pain in extremity [Unknown]
  - Pyrexia [Unknown]
  - Rash [Unknown]
  - Neutropenic sepsis [Recovering/Resolving]

NARRATIVE: CASE EVENT DATE: 20190602
